FAERS Safety Report 9241144 (Version 1)
Quarter: 2013Q1

REPORT INFORMATION
  Report Type: Spontaneous
  Country: US (occurrence: None)
  Receive Date: 20121120
  Receipt Date: 20121120
  Transmission Date: 20140127
  Serious: No
  Sender: FDA-Public Use
  Company Number: 1000039172

PATIENT
  Age: 45 Year
  Sex: Male

DRUGS (3)
  1. VIIBRYD (VILAZODONE HYDROCHLORIDE) [Suspect]
     Indication: DEPRESSION
     Route: 048
     Dates: start: 20120806, end: 201209
  2. XANAX (ALPRAZOLAM) [Concomitant]
  3. AMBIEN (ZOLPIDEM TARTRATE) [Concomitant]

REACTIONS (1)
  - Spontaneous penile erection [None]
